FAERS Safety Report 9134979 (Version 5)
Quarter: 2013Q2

REPORT INFORMATION
  Report Type: Spontaneous
  Country: US (occurrence: US)
  Receive Date: 20130304
  Receipt Date: 20130521
  Transmission Date: 20140414
  Serious: Yes (Hospitalization)
  Sender: FDA-Public Use
  Company Number: US-PFIZER INC-2013072019

PATIENT
  Age: 41 Year
  Sex: Female
  Weight: 76 kg

DRUGS (12)
  1. SUTENT [Suspect]
     Dosage: 50 MG, DAILY, CYCLIC
     Dates: start: 20130219, end: 20130506
  2. NEXIUM [Concomitant]
     Dosage: 40 MG, 1X/DAY
  3. SINGULAIR [Concomitant]
     Dosage: 10 MG, 1X/DAY
  4. LISINOPRIL [Concomitant]
     Dosage: 10 MG, 1X/DAY
  5. HYDROCHLOROTHIAZIDE [Concomitant]
     Dosage: 25 MG, 1X/DAY
  6. ZOLOFT [Concomitant]
     Dosage: 100 MG, NIGHTLY
  7. XANAX [Concomitant]
     Dosage: 25 MG, 2X/DAY
  8. FLEXERIL [Concomitant]
     Dosage: 10 MG, 3X/DAY
  9. MS CONTIN [Concomitant]
     Dosage: 60 MG, 2X/DAY
  10. MORPHINE IR [Concomitant]
     Dosage: 15 MG, EVERY 4 HOURS AS NEEDED
  11. MIRALAX [Concomitant]
     Dosage: UNK
  12. FENTANYL PATCH [Concomitant]
     Dosage: UNK
     Route: 062

REACTIONS (11)
  - Constipation [Not Recovered/Not Resolved]
  - Dysgeusia [Not Recovered/Not Resolved]
  - Dysphagia [Not Recovered/Not Resolved]
  - Decreased appetite [Recovering/Resolving]
  - Disease progression [Unknown]
  - Neoplasm malignant [Unknown]
  - Fatigue [Unknown]
  - Glossodynia [Unknown]
  - Pain [Unknown]
  - Increased upper airway secretion [Unknown]
  - Nausea [Unknown]
